FAERS Safety Report 5198802-X (Version None)
Quarter: 2007Q1

REPORT INFORMATION
  Report Type: 
  Country: None (occurrence: None)
  Receive Date: 20070104
  Receipt Date: 20061221
  Transmission Date: 20070707
  Serious: Yes (Other)
  Sender: FDA-Public Use
  Company Number: GSK1856

PATIENT
  Sex: Female

DRUGS (8)
  1. LAMOTRIGINE [Suspect]
     Indication: DRUG USE FOR UNKNOWN INDICATION
     Route: 048
  2. CHLORPROMAZINE [Suspect]
     Indication: DRUG USE FOR UNKNOWN INDICATION
     Route: 048
  3. LEVETIRACETAM [Suspect]
     Indication: DRUG USE FOR UNKNOWN INDICATION
     Route: 048
  4. AMISULPRIDE [Suspect]
     Indication: DRUG USE FOR UNKNOWN INDICATION
     Route: 048
  5. OMEPRAZOLE [Suspect]
     Indication: DRUG USE FOR UNKNOWN INDICATION
     Route: 048
  6. VENLAFAXINE HCL [Suspect]
     Indication: DRUG USE FOR UNKNOWN INDICATION
     Route: 048
  7. FLURAZEPAM [Suspect]
     Indication: DRUG USE FOR UNKNOWN INDICATION
     Route: 048
  8. LORAZEPAM [Suspect]
     Indication: DRUG USE FOR UNKNOWN INDICATION
     Route: 048

REACTIONS (2)
  - INTENTIONAL OVERDOSE [None]
  - SOMNOLENCE [None]
